FAERS Safety Report 18346713 (Version 4)
Quarter: 2022Q1

REPORT INFORMATION
  Report Type: Spontaneous
  Country: US (occurrence: US)
  Receive Date: 20201005
  Receipt Date: 20220310
  Transmission Date: 20220423
  Serious: Yes (Hospitalization)
  Sender: FDA-Public Use
  Company Number: US-BIOCODEX2-202001331

PATIENT

DRUGS (8)
  1. DIACOMIT [Suspect]
     Active Substance: STIRIPENTOL
     Indication: Severe myoclonic epilepsy of infancy
     Dosage: 750 MG, QD (MIX TWO PACKETS WITH 20ML OF WATER AND TAKE 15ML (375MG) TWICE DAILY.)
     Route: 048
     Dates: start: 20200603
  2. DIACOMIT [Suspect]
     Active Substance: STIRIPENTOL
     Dosage: 750 MG, QD (375MG TWICE DAILY)
     Route: 065
     Dates: start: 20200603
  3. DIACOMIT [Suspect]
     Active Substance: STIRIPENTOL
     Dosage: 1000 MG, QD (MIX ONE SACHET OF 500MG IN 10ML OF WATER AND TAKE BY MOUTH TWICE DAILY.)
     Route: 048
  4. DIACOMIT [Suspect]
     Active Substance: STIRIPENTOL
     Dosage: 1000 MG, QD (500MG TWICE DAILY)
     Route: 065
  5. CLOBAZAM [Concomitant]
     Active Substance: CLOBAZAM
     Indication: Severe myoclonic epilepsy of infancy
     Route: 065
  6. TOPIRAMATE [Concomitant]
     Active Substance: TOPIRAMATE
     Indication: Product used for unknown indication
     Route: 065
  7. VALPROIC ACID [Concomitant]
     Active Substance: VALPROIC ACID
     Indication: Product used for unknown indication
     Route: 065
  8. FINTEPLA [Concomitant]
     Active Substance: FENFLURAMINE
     Indication: Product used for unknown indication
     Route: 065

REACTIONS (2)
  - Seizure [Unknown]
  - Blood glucose increased [Unknown]
